FAERS Safety Report 17057129 (Version 2)
Quarter: 2019Q4

REPORT INFORMATION
  Report Type: Report from Study
  Country: GB (occurrence: GB)
  Receive Date: 20191121
  Receipt Date: 20191203
  Transmission Date: 20200122
  Serious: Yes (Other)
  Sender: FDA-Public Use
  Company Number: GB-ACCORD-161773

PATIENT
  Age: 36 Year
  Sex: Female

DRUGS (1)
  1. MITOMYCIN. [Suspect]
     Active Substance: MITOMYCIN
     Indication: UVEITIC GLAUCOMA
     Dosage: 0.4X0.1 (MG/ML) X VOLUME (ML) AT TIME OF XEN-45 SURGERY

REACTIONS (3)
  - Hypotony maculopathy [Unknown]
  - Conjunctival bleb [Unknown]
  - Off label use [Unknown]
